FAERS Safety Report 16567470 (Version 19)
Quarter: 2024Q4

REPORT INFORMATION
  Report Type: Report from Study
  Country: CO (occurrence: CO)
  Receive Date: 20190712
  Receipt Date: 20241011
  Transmission Date: 20250114
  Serious: Yes (Hospitalization, Other)
  Sender: TAKEDA
  Company Number: CO-TAKEDA-2018TUS004908

PATIENT
  Age: 73 Year
  Sex: Female
  Weight: 45 kg

DRUGS (13)
  1. VEDOLIZUMAB [Suspect]
     Active Substance: VEDOLIZUMAB
     Indication: Colitis ulcerative
     Dosage: 300 MILLIGRAM
     Route: 042
     Dates: start: 20170529
  2. VEDOLIZUMAB [Suspect]
     Active Substance: VEDOLIZUMAB
     Dosage: 300 MILLIGRAM, Q6WEEKS
     Route: 042
  3. VEDOLIZUMAB [Suspect]
     Active Substance: VEDOLIZUMAB
     Dosage: 300 MILLIGRAM
     Route: 042
  4. LINAGLIPTIN [Concomitant]
     Active Substance: LINAGLIPTIN
     Dosage: 10 MILLIGRAM
     Route: 048
  5. LOSARTAN [Concomitant]
     Active Substance: LOSARTAN
     Dosage: 50 MILLIGRAM, BID
  6. LOSARTAN + HIDROCLOROTIAZIDA ACTAVIS [Concomitant]
     Dosage: 50 MILLIGRAM, QD
  7. GLYBURIDE [Concomitant]
     Active Substance: GLYBURIDE
     Dosage: UNK
  8. CHOLESTYRAMINE [Concomitant]
     Active Substance: CHOLESTYRAMINE
     Dosage: UNK
  9. AZATHIOPRINE [Concomitant]
     Active Substance: AZATHIOPRINE
     Dosage: 500 MILLIGRAM, QD
  10. ASPIRIN [Concomitant]
     Active Substance: ASPIRIN
     Dosage: UNK UNK, QD
  11. HYDROCHLOROTHIAZIDE [Concomitant]
     Active Substance: HYDROCHLOROTHIAZIDE
     Dosage: UNK UNK, QD
  12. ESOMEPRAZOLE [Concomitant]
     Active Substance: ESOMEPRAZOLE
     Dosage: UNK
  13. MESALAMINE [Concomitant]
     Active Substance: MESALAMINE
     Dosage: UNK

REACTIONS (34)
  - Haematochezia [Not Recovered/Not Resolved]
  - Decreased immune responsiveness [Recovering/Resolving]
  - Weight decreased [Recovered/Resolved]
  - Abdominal pain [Not Recovered/Not Resolved]
  - Blood glucose increased [Not Recovered/Not Resolved]
  - Diarrhoea haemorrhagic [Recovering/Resolving]
  - COVID-19 [Unknown]
  - Diarrhoea [Recovered/Resolved]
  - Head injury [Recovering/Resolving]
  - Humerus fracture [Recovering/Resolving]
  - Joint injury [Recovering/Resolving]
  - Joint effusion [Not Recovered/Not Resolved]
  - Malaise [Not Recovered/Not Resolved]
  - Discouragement [Not Recovered/Not Resolved]
  - Injury [Unknown]
  - Victim of crime [Unknown]
  - Asthenia [Not Recovered/Not Resolved]
  - Inappropriate schedule of product administration [Unknown]
  - Off label use [Unknown]
  - Crying [Unknown]
  - Swelling [Unknown]
  - Pain [Not Recovered/Not Resolved]
  - Mood swings [Unknown]
  - Headache [Recovered/Resolved]
  - Pyrexia [Recovered/Resolved]
  - Pain in extremity [Unknown]
  - Cough [Not Recovered/Not Resolved]
  - Fall [Unknown]
  - Weight increased [Unknown]
  - Muscle atrophy [Unknown]
  - Depressed mood [Unknown]
  - Frequent bowel movements [Recovering/Resolving]
  - Discomfort [Recovered/Resolved]
  - Decreased appetite [Not Recovered/Not Resolved]

NARRATIVE: CASE EVENT DATE: 20180215
